FAERS Safety Report 6031313-8 (Version None)
Quarter: 2008Q4

REPORT INFORMATION
  Report Type: 
  Country: None (occurrence: None)
  Receive Date: 20081222
  Receipt Date: 20081017
  Transmission Date: 20090506
  Serious: No
  Sender: FDA-Public Use
  Company Number: US-WYE-H06482308

PATIENT
  Age: 53 Year
  Sex: Female
  Weight: 65.83 kg

DRUGS (4)
  1. PRISTIQ [Suspect]
     Indication: DEPRESSION
     Dosage: 50 MG 1X PER 1 DAY, ORAL
     Route: 048
     Dates: start: 20080901
  2. ZOCOR [Concomitant]
  3. SYNTHROID [Concomitant]
  4. METOPROLOL TARTRATE [Concomitant]

REACTIONS (8)
  - ABNORMAL DREAMS [None]
  - DIZZINESS [None]
  - HEADACHE [None]
  - HYPOAESTHESIA [None]
  - INSOMNIA [None]
  - MIGRAINE [None]
  - NAUSEA [None]
  - PARAESTHESIA [None]
